FAERS Safety Report 15907379 (Version 1)
Quarter: 2019Q1

REPORT INFORMATION
  Report Type: Spontaneous
  Country: US (occurrence: US)
  Receive Date: 20190204
  Receipt Date: 20190204
  Transmission Date: 20190417
  Serious: Yes (Hospitalization, Other)
  Sender: FDA-Public Use
  Company Number: US-OTSUKA-2019_002593

PATIENT
  Sex: Female

DRUGS (2)
  1. SAMSCA [Suspect]
     Active Substance: TOLVAPTAN
     Indication: INAPPROPRIATE ANTIDIURETIC HORMONE SECRETION
     Dosage: 30 MG, BID
     Route: 065
  2. SAMSCA [Suspect]
     Active Substance: TOLVAPTAN
     Dosage: 30 MG, BID
     Route: 065
     Dates: start: 201901

REACTIONS (6)
  - Incorrect product administration duration [Unknown]
  - Insurance issue [Unknown]
  - Seizure [Unknown]
  - Speech disorder [Unknown]
  - Incorrect dose administered [Unknown]
  - Product dose omission [Unknown]
